FAERS Safety Report 9177540 (Version 2)
Quarter: 2012Q4

REPORT INFORMATION
  Report Type: 
  Country: US (occurrence: US)
  Receive Date: 20121001
  Receipt Date: 20121005
  Transmission Date: 20130627
  Serious: Yes (Other)
  Sender: FDA-Public Use
  Company Number: US-RB-044885-12

PATIENT
  Age: 72 Year
  Sex: Male

DRUGS (1)
  1. MUCINEX [Suspect]
     Indication: PRODUCT USED FOR UNKNOWN INDICATION
     Route: 048
     Dates: start: 20120917

REACTIONS (2)
  - Epistaxis [Not Recovered/Not Resolved]
  - Sinusitis [Not Recovered/Not Resolved]
